FAERS Safety Report 24362949 (Version 17)
Quarter: 2025Q4

REPORT INFORMATION
  Report Type: Spontaneous
  Country: US (occurrence: US)
  Receive Date: 20240925
  Receipt Date: 20251111
  Transmission Date: 20260117
  Serious: No
  Sender: PFIZER
  Company Number: US-PFIZER INC-PV202400124369

PATIENT
  Age: 35 Year
  Sex: Female

DRUGS (9)
  1. TUKYSA [Suspect]
     Active Substance: TUCATINIB
     Dosage: 150 MG, 2 TABLETS EVERY 12 HOURS
  2. TUKYSA [Suspect]
     Active Substance: TUCATINIB
     Dosage: 50 MG, 4 TABLETS TWICE DAILY
  3. TUKYSA [Suspect]
     Active Substance: TUCATINIB
     Dosage: 3 PILLS IN THE MORNING, AND 3 PILLS IN THE EVENING
  4. TUKYSA [Suspect]
     Active Substance: TUCATINIB
     Dosage: 50 MG, 3 TABLETS TWICE A DAY (AT 0900 AND 1700)
  5. TUKYSA [Suspect]
     Active Substance: TUCATINIB
     Dosage: TAKE FOUR 50 MG TABLETS TWICE DAILY
     Route: 048
  6. TUKYSA [Suspect]
     Active Substance: TUCATINIB
     Dosage: 4 TABLETS, TWICE A DAY, ONE WEEK ON, ONE WEEK OFF
  7. TUKYSA [Suspect]
     Active Substance: TUCATINIB
     Dosage: 50 MG, 3 TABLETS, TWICE A DAY FOR ONE WEEK ON FOR 7 DAYS, ONE WEEK OFF 7 DAYS
  8. TUKYSA [Suspect]
     Active Substance: TUCATINIB
     Dosage: 150MG TWICE DAILY, FOR ONE WEEK ON AND ONE WEEK OFF
  9. TUKYSA [Suspect]
     Active Substance: TUCATINIB
     Dosage: 3 X 50MG TABLETS, TWICE DAILY (09:00 AND 17:00) FOR 1 WEEK ON (7DAYS) AND 1 WEEK OFF (7DAYS)
     Route: 048

REACTIONS (9)
  - Skin discolouration [Unknown]
  - Diarrhoea [Unknown]
  - Nausea [Unknown]
  - Vomiting [Unknown]
  - Anosmia [Unknown]
  - Peripheral swelling [Unknown]
  - Liver disorder [Unknown]
  - Off label use [Unknown]
  - Intentional dose omission [Unknown]
